FAERS Safety Report 7455151-4 (Version None)
Quarter: 2011Q2

REPORT INFORMATION
  Report Type: 
  Country: None (occurrence: None)
  Receive Date: 20110503
  Receipt Date: 20110428
  Transmission Date: 20111010
  Serious: Yes (Life-Threatening, Hospitalization)
  Sender: FDA-Public Use
  Company Number: US-GILEAD-2011-0038921

PATIENT
  Sex: Female
  Weight: 62.652 kg

DRUGS (20)
  1. ACICLOVIR [Concomitant]
     Indication: GENITAL HERPES
  2. BACTRIM [Concomitant]
     Indication: ANTIFUNGAL PROPHYLAXIS
  3. TERCONAZOLE [Concomitant]
     Indication: FUNGAL INFECTION
  4. CODEINE [Concomitant]
     Indication: SCIATICA
  5. TRUVADA [Suspect]
     Indication: HIV INFECTION
     Dates: start: 20080911
  6. IBUPROFEN [Concomitant]
     Indication: SCIATICA
  7. LISINOPRIL [Concomitant]
     Indication: HYPERTENSION
  8. LAMOTRIGINE [Concomitant]
     Indication: DEPRESSION
  9. METFORMIN HYDROCHLORIDE [Concomitant]
     Indication: TYPE 2 DIABETES MELLITUS
  10. ACETAMINOPHEN [Concomitant]
     Indication: SCIATICA
  11. METOCLOPRAMIDE [Concomitant]
  12. SIMVASTATIN [Concomitant]
  13. CETIRIZINE HCL [Concomitant]
     Indication: SEASONAL ALLERGY
  14. TRAZODONE HCL [Concomitant]
     Indication: INSOMNIA
  15. ATRIPLA [Suspect]
     Indication: HIV INFECTION
     Dates: start: 20110303
  16. ATENOLOL [Concomitant]
     Indication: HYPERTENSION
  17. FAMOTIDINE [Concomitant]
  18. GABAPENTIN [Concomitant]
  19. LORAZEPAM [Concomitant]
  20. GEMFIBROZIL [Concomitant]

REACTIONS (3)
  - LACTIC ACIDOSIS [None]
  - RENAL FAILURE ACUTE [None]
  - SEPTIC SHOCK [None]
